FAERS Safety Report 24840405 (Version 1)
Quarter: 2025Q1

REPORT INFORMATION
  Report Type: Spontaneous
  Country: IT (occurrence: IT)
  Receive Date: 20250114
  Receipt Date: 20250114
  Transmission Date: 20250409
  Serious: Yes (Hospitalization)
  Sender: ASTELLAS
  Company Number: IT-ASTELLAS-2025-AER-001686

PATIENT
  Age: 53 Year
  Sex: Male

DRUGS (1)
  1. GILTERITINIB [Suspect]
     Active Substance: GILTERITINIB
     Indication: Acute myeloid leukaemia recurrent
     Route: 065
     Dates: start: 202302

REACTIONS (2)
  - Hyperpyrexia [Unknown]
  - Escherichia infection [Unknown]

NARRATIVE: CASE EVENT DATE: 20230101
